FAERS Safety Report 8207533-0 (Version None)
Quarter: 2012Q1

REPORT INFORMATION
  Report Type: 
  Country: None (occurrence: None)
  Receive Date: 20120314
  Receipt Date: 20120307
  Transmission Date: 20120608
  Serious: Yes (Hospitalization)
  Sender: FDA-Public Use
  Company Number: US-CELGENEUS-163-21880-12030945

PATIENT
  Sex: Male

DRUGS (5)
  1. PREVACID [Concomitant]
     Dosage: 15 MILLIGRAM
     Route: 065
  2. REVLIMID [Suspect]
     Indication: MULTIPLE MYELOMA
     Dosage: 5 MILLIGRAM
     Route: 048
     Dates: start: 20080516
  3. DEXAMETHASONE [Concomitant]
     Dosage: 4 MILLIGRAM
     Route: 065
  4. LISINOPRIL [Concomitant]
     Dosage: 5 MILLIGRAM
     Route: 065
  5. PERCOCET [Concomitant]
     Dosage: 10-325MG
     Route: 065

REACTIONS (1)
  - PNEUMONIA ASPIRATION [None]
